FAERS Safety Report 24413552 (Version 4)
Quarter: 2025Q3

REPORT INFORMATION
  Report Type: Spontaneous
  Country: US (occurrence: US)
  Receive Date: 20241008
  Receipt Date: 20250922
  Transmission Date: 20251021
  Serious: No
  Sender: BIOMARIN
  Company Number: US-BIOMARINAP-US-2024-160998

PATIENT
  Age: 35 Year
  Sex: Female

DRUGS (8)
  1. PALYNZIQ [Suspect]
     Active Substance: PEGVALIASE-PQPZ
     Indication: Phenylketonuria
  2. PALYNZIQ [Suspect]
     Active Substance: PEGVALIASE-PQPZ
     Dosage: 10 MILLIGRAM, QD
  3. PALYNZIQ [Suspect]
     Active Substance: PEGVALIASE-PQPZ
  4. PALYNZIQ [Suspect]
     Active Substance: PEGVALIASE-PQPZ
  5. LORATADINE [Concomitant]
     Active Substance: LORATADINE
     Indication: Phenylketonuria
     Dosage: 10 MILLIGRAM, QD
     Dates: start: 20230407
  6. LORATADINE [Concomitant]
     Active Substance: LORATADINE
     Indication: Seasonal allergy
     Dosage: 20 MILLIGRAM, QOD
  7. LORATADINE [Concomitant]
     Active Substance: LORATADINE
     Dosage: 10 MILLIGRAM, QOD
  8. SERTRALINE [Concomitant]
     Active Substance: SERTRALINE HYDROCHLORIDE
     Indication: Affective disorder
     Dosage: 100 MILLIGRAM, QD

REACTIONS (2)
  - Asthma [Unknown]
  - Maternal exposure during pregnancy [Recovered/Resolved]
